FAERS Safety Report 21018048 (Version 1)
Quarter: 2022Q2

REPORT INFORMATION
  Report Type: Spontaneous
  Country: US (occurrence: None)
  Receive Date: 20220627
  Receipt Date: 20220627
  Transmission Date: 20220721
  Serious: No
  Sender: FDA-Public Use
  Company Number: None

PATIENT
  Age: 48 Year
  Sex: Male

DRUGS (1)
  1. HUMIRA [Suspect]
     Active Substance: ADALIMUMAB
     Indication: Psoriatic arthropathy
     Dosage: 40MG  EVERY 14 DAYS SUBQ?
     Route: 058
     Dates: start: 202204

REACTIONS (3)
  - Drug hypersensitivity [None]
  - Injection site reaction [None]
  - Injection site erythema [None]

NARRATIVE: CASE EVENT DATE: 20220601
